FAERS Safety Report 5577472-2 (Version None)
Quarter: 2007Q4

REPORT INFORMATION
  Report Type: 
  Country: None (occurrence: None)
  Receive Date: 20071130
  Receipt Date: 20070927
  Transmission Date: 20080405
  Serious: No
  Sender: FDA-Public Use
  Company Number: US200709006834

PATIENT
  Age: 63 Year
  Sex: Female
  Weight: 127 kg

DRUGS (3)
  1. BYETTA [Suspect]
     Indication: INSULIN-REQUIRING TYPE II DIABETES MELLITUS
     Dosage: 5 UG, 2/D, SUBCUTANEOUS
     Route: 058
     Dates: start: 20070824, end: 20070901
  2. LANTUS [Concomitant]
  3. APIDRA [Concomitant]

REACTIONS (6)
  - BLOOD GLUCOSE FLUCTUATION [None]
  - DECREASED APPETITE [None]
  - DIARRHOEA [None]
  - FEELING JITTERY [None]
  - HYPERHIDROSIS [None]
  - WEIGHT DECREASED [None]
